FAERS Safety Report 9458620 (Version 1)
Quarter: 2013Q3

REPORT INFORMATION
  Report Type: Spontaneous
  Country: US (occurrence: None)
  Receive Date: 20130813
  Receipt Date: 20130813
  Transmission Date: 20140515
  Serious: Yes (Disabling, Other)
  Sender: FDA-Public Use
  Company Number: None

PATIENT
  Age: 32 Year
  Sex: Male
  Weight: 63.6 kg

DRUGS (1)
  1. WARFARIN [Suspect]
     Indication: PULMONARY EMBOLISM
     Dosage: 5MG - 7.5MG QD PO
     Route: 048
     Dates: start: 20130614, end: 20130707

REACTIONS (8)
  - Paraesthesia [None]
  - Hypoaesthesia [None]
  - Hypoaesthesia [None]
  - Asthenia [None]
  - Lethargy [None]
  - Sensation of heaviness [None]
  - Diarrhoea [None]
  - Weight decreased [None]
